FAERS Safety Report 10412879 (Version 3)
Quarter: 2015Q2

REPORT INFORMATION
  Report Type: Report from Study
  Country: US (occurrence: US)
  Receive Date: 20140827
  Receipt Date: 20150622
  Transmission Date: 20150821
  Serious: Yes (Hospitalization, Other)
  Sender: FDA-Public Use
  Company Number: US-ACTELION-A-US2014-104216

PATIENT
  Age: 71 Year
  Sex: Female

DRUGS (4)
  1. VELETRI [Suspect]
     Active Substance: EPOPROSTENOL
     Indication: PULMONARY HYPERTENSION
     Dosage: 12.5 NG/KG, PER MIN
     Route: 042
     Dates: start: 20131002
  2. XARELTO [Concomitant]
     Active Substance: RIVAROXABAN
  3. OXYGEN. [Concomitant]
     Active Substance: OXYGEN
  4. RIOCIGUAT [Concomitant]
     Active Substance: RIOCIGUAT

REACTIONS (8)
  - Transient ischaemic attack [Unknown]
  - Condition aggravated [Unknown]
  - Cerebrovascular accident [Unknown]
  - Cataract [Unknown]
  - Somnolence [Unknown]
  - Confusional state [Unknown]
  - Vascular dementia [Unknown]
  - Amnesia [Unknown]

NARRATIVE: CASE EVENT DATE: 20140726
